FAERS Safety Report 8458494-0 (Version None)
Quarter: 2012Q2

REPORT INFORMATION
  Report Type: 
  Country: None (occurrence: None)
  Receive Date: 20120622
  Receipt Date: 20120613
  Transmission Date: 20120825
  Serious: Yes (Other)
  Sender: FDA-Public Use
  Company Number: FR-VERTEX PHARMACEUTICALS INC.-000000000000000945

PATIENT
  Sex: Female

DRUGS (4)
  1. COPEGUS [Concomitant]
     Indication: HEPATITIS C
     Dates: start: 20120104
  2. PEGASYS [Concomitant]
     Indication: HEPATITIS C
     Dates: start: 20120104
  3. INCIVO [Suspect]
     Indication: HEPATITIS C
     Dosage: DOSAGE FORM: TABLET, TREATMENT WAS STOPPED AFTER 12 WEEKS
     Route: 048
     Dates: start: 20120209
  4. VIRAFERONPEG [Concomitant]
     Indication: HEPATITIS C
     Dosage: TREATMENT WAS STOOPED DUE TO DRUG PRESCRIBING ERROR BY THE FAMILY DOCTOR

REACTIONS (4)
  - RENAL FAILURE [None]
  - HYPERURICAEMIA [None]
  - GOUT [None]
  - ANAEMIA [None]
